FAERS Safety Report 4952602-1 (Version None)
Quarter: 2006Q1

REPORT INFORMATION
  Report Type: 
  Country: None (occurrence: None)
  Receive Date: 20060317
  Receipt Date: 20060306
  Transmission Date: 20060701
  Serious: Yes (Other)
  Sender: FDA-Public Use
  Company Number: SUS1-2006-00279

PATIENT
  Sex: Female

DRUGS (1)
  1. CARBATROL [Suspect]
     Dosage: 300 MG, 2X/DAY; BID; ORAL
     Route: 048

REACTIONS (2)
  - CONVULSION [None]
  - IRON DEFICIENCY ANAEMIA [None]
